FAERS Safety Report 14372311 (Version 1)
Quarter: 2018Q1

REPORT INFORMATION
  Report Type: Spontaneous
  Country: SE (occurrence: SE)
  Receive Date: 20180110
  Receipt Date: 20180110
  Transmission Date: 20180509
  Serious: Yes (Other)
  Sender: FDA-Public Use
  Company Number: SE-AMGEN-SWESP2017179167

PATIENT
  Age: 50 Year
  Sex: Male
  Weight: 78 kg

DRUGS (2)
  1. TROMBYL [Concomitant]
     Active Substance: ASPIRIN
     Dosage: 1X1
  2. REPATHA [Suspect]
     Active Substance: EVOLOCUMAB
     Indication: PROPHYLAXIS
     Dosage: 140 MG, Q2WK
     Route: 065
     Dates: start: 20170919, end: 20171017

REACTIONS (7)
  - Feeling cold [Recovered/Resolved]
  - Malaise [Recovered/Resolved]
  - Myalgia [Recovered/Resolved]
  - Impaired quality of life [Recovered/Resolved]
  - Sleep disorder [Recovering/Resolving]
  - Asthenia [Recovered/Resolved]
  - Arthralgia [Recovered/Resolved]

NARRATIVE: CASE EVENT DATE: 20170920
